FAERS Safety Report 8917031 (Version 2)
Quarter: 2013Q1

REPORT INFORMATION
  Report Type: Spontaneous
  Country: BE (occurrence: BE)
  Receive Date: 20121120
  Receipt Date: 20121126
  Transmission Date: 20140127
  Serious: Yes (Disabling, Other)
  Sender: FDA-Public Use
  Company Number: BE-ASTRAZENECA-2012SE86423

PATIENT
  Age: 12418 Day
  Sex: Male
  Weight: 70 kg

DRUGS (1)
  1. NAROPIN [Suspect]
     Indication: HAEMORRHOID OPERATION
     Dosage: 5 - 10 ML OF 1 VIAL 20 ML 0.75
     Route: 050

REACTIONS (2)
  - Erectile dysfunction [Not Recovered/Not Resolved]
  - Off label use [Unknown]
